FAERS Safety Report 12141447 (Version 3)
Quarter: 2016Q1

REPORT INFORMATION
  Report Type: Report from Study
  Country: US (occurrence: US)
  Receive Date: 20160303
  Receipt Date: 20160329
  Transmission Date: 20160526
  Serious: Yes (Other)
  Sender: FDA-Public Use
  Company Number: US-SA-2016SA026336

PATIENT
  Age: 65 Year
  Sex: Female

DRUGS (3)
  1. AUBAGIO [Suspect]
     Active Substance: TERIFLUNOMIDE
     Indication: MULTIPLE SCLEROSIS
     Route: 048
     Dates: start: 20160128, end: 20160218
  2. AUBAGIO [Suspect]
     Active Substance: TERIFLUNOMIDE
     Indication: MULTIPLE SCLEROSIS
     Route: 048
     Dates: start: 20160128, end: 20160218
  3. AUBAGIO [Suspect]
     Active Substance: TERIFLUNOMIDE
     Indication: MULTIPLE SCLEROSIS
     Route: 048
     Dates: start: 20160219, end: 20160229

REACTIONS (24)
  - Urinary tract infection [Unknown]
  - Feeling abnormal [Recovering/Resolving]
  - Dizziness [Unknown]
  - Hypoaesthesia [Unknown]
  - Wrong technique in product usage process [Unknown]
  - Lethargy [Recovered/Resolved]
  - Fatigue [Not Recovered/Not Resolved]
  - Abulia [Unknown]
  - Diarrhoea [Unknown]
  - Depressed level of consciousness [Recovering/Resolving]
  - Depression [Recovered/Resolved]
  - Gait disturbance [Recovering/Resolving]
  - Fatigue [Unknown]
  - Somnolence [Unknown]
  - Abdominal discomfort [Recovering/Resolving]
  - Headache [Recovering/Resolving]
  - Fungal infection [Unknown]
  - Suicidal ideation [Unknown]
  - Apathy [Recovering/Resolving]
  - Confusional state [Unknown]
  - Ill-defined disorder [Not Recovered/Not Resolved]
  - Balance disorder [Recovering/Resolving]
  - Ear infection [Not Recovered/Not Resolved]
  - Malaise [Not Recovered/Not Resolved]

NARRATIVE: CASE EVENT DATE: 2016
